FAERS Safety Report 9801363 (Version 8)
Quarter: 2016Q3

REPORT INFORMATION
  Report Type: Spontaneous
  Country: US (occurrence: US)
  Receive Date: 20140107
  Receipt Date: 20160919
  Transmission Date: 20161109
  Serious: Yes (Hospitalization, Other)
  Sender: FDA-Public Use
  Company Number: US-GLAXOSMITHKLINE-A1049565A

PATIENT
  Age: 41 Year
  Sex: Female

DRUGS (5)
  1. BENLYSTA [Suspect]
     Active Substance: BELIMUMAB
     Dosage: 1200 MG, U
  2. BENLYSTA [Suspect]
     Active Substance: BELIMUMAB
     Dosage: 1200 MG, UNK
     Dates: start: 201603
  3. BENLYSTA [Suspect]
     Active Substance: BELIMUMAB
     Indication: LUPUS ENDOCARDITIS
     Dosage: UNK, U
     Route: 042
  4. BENLYSTA [Suspect]
     Active Substance: BELIMUMAB
     Dosage: UNK
     Dates: start: 2012
  5. BENLYSTA [Suspect]
     Active Substance: BELIMUMAB
     Indication: SYSTEMIC LUPUS ERYTHEMATOSUS
     Dosage: 120 MG, U
     Route: 042
     Dates: start: 20110601, end: 201306

REACTIONS (18)
  - Weight increased [Unknown]
  - Walking aid user [Not Recovered/Not Resolved]
  - Bone disorder [Not Recovered/Not Resolved]
  - Chest pain [Unknown]
  - Pruritus [Unknown]
  - Rash [Not Recovered/Not Resolved]
  - Confusional state [Unknown]
  - Mobility decreased [Not Recovered/Not Resolved]
  - Connective tissue inflammation [Unknown]
  - Musculoskeletal disorder [Unknown]
  - Pain [Not Recovered/Not Resolved]
  - Dyspnoea [Unknown]
  - Fatigue [Unknown]
  - Product supply issue [Not Recovered/Not Resolved]
  - Systemic lupus erythematosus [Unknown]
  - Arthropathy [Not Recovered/Not Resolved]
  - Malaise [Unknown]
  - Incorrect dose administered [Unknown]

NARRATIVE: CASE EVENT DATE: 2016
